FAERS Safety Report 9456104 (Version 1)
Quarter: 2013Q3

REPORT INFORMATION
  Report Type: Report from Study
  Country: DE (occurrence: TR)
  Receive Date: 20130813
  Receipt Date: 20130813
  Transmission Date: 20140515
  Serious: Yes (Death, Hospitalization)
  Sender: FDA-Public Use
  Company Number: DE-ACTELION-A-US2013-87021

PATIENT
  Age: 4 Year
  Sex: Male

DRUGS (2)
  1. VENTAVIS [Suspect]
     Indication: PULMONARY HYPERTENSION
     Dosage: 5/DAY
     Route: 055
     Dates: start: 20121201, end: 20130802
  2. TRACLEER [Concomitant]
     Route: 048

REACTIONS (3)
  - Death [Fatal]
  - Angina pectoris [Not Recovered/Not Resolved]
  - Off label use [Unknown]
